FAERS Safety Report 15403324 (Version 1)
Quarter: 2018Q3

REPORT INFORMATION
  Report Type: Spontaneous
  Country: US (occurrence: US)
  Receive Date: 20180919
  Receipt Date: 20180919
  Transmission Date: 20181010
  Serious: Yes (Hospitalization)
  Sender: FDA-Public Use
  Company Number: US-EXELIXIS-CABO-18015939

PATIENT
  Sex: Male

DRUGS (2)
  1. CABOMETYX [Suspect]
     Active Substance: CABOZANTINIB S-MALATE
     Indication: RENAL CELL CARCINOMA
     Dosage: UNK
  2. CABOMETYX [Suspect]
     Active Substance: CABOZANTINIB S-MALATE
     Dosage: 40 MG, QD
     Route: 048

REACTIONS (8)
  - Metastases to spine [Unknown]
  - Pulmonary embolism [Unknown]
  - Pneumonia [Unknown]
  - Metastases to central nervous system [Unknown]
  - Tachycardia [Unknown]
  - Hypercalcaemia [Unknown]
  - Anaemia [Unknown]
  - Intracranial tumour haemorrhage [Unknown]

NARRATIVE: CASE EVENT DATE: 2018
